FAERS Safety Report 24607252 (Version 1)
Quarter: 2024Q4

REPORT INFORMATION
  Report Type: Spontaneous
  Country: US (occurrence: US)
  Receive Date: 20241112
  Receipt Date: 20241112
  Transmission Date: 20250115
  Serious: Yes (Other)
  Sender: COOPERSURGICAL
  Company Number: US-COOPERSURGICAL, INC.-2024CPS003331

PATIENT
  Age: 32 Year
  Sex: Female
  Weight: 76.644 kg

DRUGS (1)
  1. PARAGARD T 380A [Suspect]
     Active Substance: COPPER
     Indication: Contraception
     Dosage: UNK
     Route: 015
     Dates: start: 20170705

REACTIONS (13)
  - Reproductive complication associated with device [Unknown]
  - Device breakage [Recovered/Resolved]
  - Complication of device removal [Recovered/Resolved]
  - Embedded device [Recovered/Resolved]
  - Uterine perforation [Unknown]
  - Device dislocation [Recovered/Resolved]
  - Uterine adhesions [Recovered/Resolved]
  - Mole excision [Unknown]
  - Back pain [Unknown]
  - Laser therapy [Unknown]
  - Abdominal pain [Recovered/Resolved]
  - Abdominal adhesions [Recovered/Resolved]
  - Pain [Unknown]

NARRATIVE: CASE EVENT DATE: 20170705
